FAERS Safety Report 4501909-0 (Version None)
Quarter: 2004Q4

REPORT INFORMATION
  Report Type: 
  Country: None (occurrence: None)
  Receive Date: 20041115
  Receipt Date: 20041115
  Transmission Date: 20050328
  Serious: Yes (Other)
  Sender: FDA-Public Use
  Company Number: None

PATIENT
  Age: 16 Year
  Sex: Male

DRUGS (1)
  1. TUBERCULIN PURIFIED PROTEIN DERIVATIVE DILUTED /APLISOL [Suspect]
     Dosage: ID
     Route: 023
     Dates: start: 20040929

REACTIONS (3)
  - INJECTION SITE ERYTHEMA [None]
  - INJECTION SITE HYPERSENSITIVITY [None]
  - INJECTION SITE INDURATION [None]
